FAERS Safety Report 23134950 (Version 1)
Quarter: 2023Q4

REPORT INFORMATION
  Report Type: Spontaneous
  Country: CN (occurrence: CN)
  Receive Date: 20231101
  Receipt Date: 20231101
  Transmission Date: 20240109
  Serious: Yes (Life-Threatening)
  Sender: FDA-Public Use
  Company Number: CN-PFIZER INC-PV202300177386

PATIENT
  Age: 67 Year
  Sex: Male
  Weight: 80 kg

DRUGS (5)
  1. NIRMATRELVIR\RITONAVIR [Suspect]
     Active Substance: NIRMATRELVIR\RITONAVIR
     Indication: COVID-19 treatment
     Dosage: 400 MG, 2X/DAY
     Route: 048
     Dates: start: 20230818, end: 20230819
  2. BISOPROLOL FUMARATE [Concomitant]
     Active Substance: BISOPROLOL FUMARATE
     Indication: Hypertension
     Dosage: 5 MG, 1X/DAY
     Route: 048
     Dates: start: 20230801, end: 20230911
  3. LEVAMLODIPINE BESYLATE [Concomitant]
     Active Substance: LEVAMLODIPINE BESYLATE
     Indication: Hypertension
     Dosage: 2.5 MG, 1X/DAY
     Route: 048
     Dates: start: 20230801, end: 20230911
  4. ASPIRIN [Concomitant]
     Active Substance: ASPIRIN
     Indication: Cardiovascular disorder
     Dosage: 100 MG, 1X/DAY
     Route: 048
     Dates: start: 20230801, end: 20230911
  5. ATORVASTATIN CALCIUM [Concomitant]
     Active Substance: ATORVASTATIN CALCIUM
     Indication: Hyperlipidaemia
     Dosage: 20 MG, 1X/DAY
     Route: 048
     Dates: start: 20230801, end: 20230911

REACTIONS (2)
  - Drug hypersensitivity [Not Recovered/Not Resolved]
  - Anaphylactic shock [Not Recovered/Not Resolved]

NARRATIVE: CASE EVENT DATE: 20230819
